FAERS Safety Report 19601809 (Version 1)
Quarter: 2021Q3

REPORT INFORMATION
  Report Type: Spontaneous
  Country: CA (occurrence: CA)
  Receive Date: 20210723
  Receipt Date: 20210723
  Transmission Date: 20211014
  Serious: Yes (Other)
  Sender: FDA-Public Use
  Company Number: CA-ACCORD-232691

PATIENT
  Age: 12 Year
  Sex: Female
  Weight: 52 kg

DRUGS (33)
  1. CEFTAZIDIME/CEFTAZIDIME PENTAHYDRATE [Concomitant]
     Active Substance: CEFTAZIDIME
  2. MELATONIN [Concomitant]
     Active Substance: MELATONIN
  3. METHOTREXATE. [Suspect]
     Active Substance: METHOTREXATE
     Indication: ACUTE LYMPHOCYTIC LEUKAEMIA
     Route: 042
  4. ACICLOVIR [Concomitant]
     Active Substance: ACYCLOVIR
  5. CALCIUM/COLECALCIFEROL [Concomitant]
     Active Substance: CALCIUM\CHOLECALCIFEROL
  6. DEXAMETHASONE. [Concomitant]
     Active Substance: DEXAMETHASONE
  7. DIMENHYDRINATE. [Concomitant]
     Active Substance: DIMENHYDRINATE
  8. DIPHENHYDRAMINE. [Concomitant]
     Active Substance: DIPHENHYDRAMINE
  9. EPINEPHRINE. [Concomitant]
     Active Substance: EPINEPHRINE
  10. FUROSEMIDE. [Concomitant]
     Active Substance: FUROSEMIDE
  11. ONDANSETRON [Concomitant]
     Active Substance: ONDANSETRON
  12. FLUCONAZOLE. [Concomitant]
     Active Substance: FLUCONAZOLE
  13. HEPARIN [Concomitant]
     Active Substance: HEPARIN SODIUM
  14. METHYLPREDNISOLONE. [Concomitant]
     Active Substance: METHYLPREDNISOLONE
  15. MOMETASONE [Concomitant]
     Active Substance: MOMETASONE
  16. URSODEOXYCHOLATE SODIUM/URSODEOXYCHOLIC ACID [Concomitant]
     Active Substance: URSODIOL
  17. PARACETAMOL [Concomitant]
     Active Substance: ACETAMINOPHEN
  18. AMLODIPINE [Concomitant]
     Active Substance: AMLODIPINE BESYLATE
  19. ALUMINIUM HYDROXIDE/MAGNESIUM HYDROXIDE [Concomitant]
     Active Substance: ALUMINUM HYDROXIDE\MAGNESIUM HYDROXIDE
  20. RANITIDINE. [Concomitant]
     Active Substance: RANITIDINE
  21. ETOPOSIDE. [Suspect]
     Active Substance: ETOPOSIDE
     Indication: ACUTE LYMPHOCYTIC LEUKAEMIA
     Route: 042
  22. CHLORHEXIDINE [Concomitant]
     Active Substance: CHLORHEXIDINE
  23. CICLOSPORIN [Concomitant]
     Active Substance: CYCLOSPORINE
  24. HYDROCORTISONE. [Concomitant]
     Active Substance: HYDROCORTISONE
  25. MACROGOL [Concomitant]
     Active Substance: POLYETHYLENE GLYCOLS
     Route: 065
  26. MORPHINE [Concomitant]
     Active Substance: MORPHINE
  27. GABAPENTIN. [Concomitant]
     Active Substance: GABAPENTIN
  28. FOLINIC ACID [Concomitant]
     Active Substance: LEUCOVORIN
  29. METOCLOPRAMIDE. [Concomitant]
     Active Substance: METOCLOPRAMIDE
  30. NIFEDIPINE. [Concomitant]
     Active Substance: NIFEDIPINE
  31. NYSTATIN. [Concomitant]
     Active Substance: NYSTATIN
  32. PENTAMIDINE [Concomitant]
     Active Substance: PENTAMIDINE
  33. ANTI?THYMOCYTE GLOBULIN (RABBIT) NOS [Concomitant]
     Active Substance: LAPINE T-LYMPHOCYTE IMMUNE GLOBULIN

REACTIONS (3)
  - Febrile neutropenia [Recovered/Resolved]
  - Aplastic anaemia [Recovered/Resolved]
  - Transfusion [Recovered/Resolved]
